FAERS Safety Report 15575928 (Version 3)
Quarter: 2018Q4

REPORT INFORMATION
  Report Type: Spontaneous
  Country: US (occurrence: US)
  Receive Date: 20181101
  Receipt Date: 20181101
  Transmission Date: 20190205
  Serious: Yes (Hospitalization)
  Sender: FDA-Public Use
  Company Number: PHHY2018US136297

PATIENT
  Age: 9 Month
  Sex: Male

DRUGS (5)
  1. MYCOPHENOLATE [Suspect]
     Active Substance: MYCOPHENOLIC ACID
     Indication: HEART TRANSPLANT
     Dosage: UNK
     Route: 065
  2. PREDNISOLONE. [Suspect]
     Active Substance: PREDNISOLONE
     Indication: HEART TRANSPLANT
     Dosage: 0.5 MG/KG, QD
     Route: 065
  3. MYCOPHENOLATE [Suspect]
     Active Substance: MYCOPHENOLIC ACID
     Dosage: UNK (DOSE WAS REDUCED BY 50%)
     Route: 065
  4. CICLOSPORIN [Suspect]
     Active Substance: CYCLOSPORINE
     Dosage: UNK (WAS DECREASED TO GOAL TROUGH LEVEL OF 100)
     Route: 065
  5. CICLOSPORIN [Suspect]
     Active Substance: CYCLOSPORINE
     Indication: HEART TRANSPLANT
     Dosage: UNK
     Route: 065

REACTIONS (10)
  - Hyperbilirubinaemia [Recovering/Resolving]
  - Cholelithiasis [Unknown]
  - Shock [Unknown]
  - Splenomegaly [Unknown]
  - Cough [Recovering/Resolving]
  - Transaminases increased [Recovering/Resolving]
  - Acute respiratory failure [Unknown]
  - Product use in unapproved indication [Unknown]
  - Adenovirus infection [Recovered/Resolved]
  - Pyrexia [Recovering/Resolving]
